FAERS Safety Report 12115428 (Version 2)
Quarter: 2016Q1

REPORT INFORMATION
  Report Type: Report from Study
  Country: JP (occurrence: JP)
  Receive Date: 20160225
  Receipt Date: 20160307
  Transmission Date: 20160526
  Serious: Yes (Hospitalization)
  Sender: FDA-Public Use
  Company Number: JP-DSJP-DSJ-2016-104629

PATIENT

DRUGS (13)
  1. SERENACE [Concomitant]
     Active Substance: HALOPERIDOL
     Dosage: 7.5MG/DAY
     Route: 048
  2. PANALDINE [Suspect]
     Active Substance: TICLOPIDINE HYDROCHLORIDE
     Dosage: 200MG/DAY
     Route: 048
     Dates: end: 20151030
  3. ELIQUIS [Concomitant]
     Active Substance: APIXABAN
     Dosage: 2.5MG/DAY
     Route: 048
     Dates: end: 20150915
  4. CIBENOL [Concomitant]
     Active Substance: CIFENLINE
     Indication: ATRIAL FIBRILLATION
     Dosage: 200MG/DAY
     Route: 048
  5. BAYASPIRIN [Concomitant]
     Active Substance: ASPIRIN
     Dosage: 100MG/DAY
     Route: 048
     Dates: end: 20151102
  6. VASOLAN                            /00014302/ [Concomitant]
     Active Substance: VERAPAMIL HYDROCHLORIDE
     Dosage: 120MG/DAY
     Route: 048
     Dates: end: 20150915
  7. RISPERIDONE. [Concomitant]
     Active Substance: RISPERIDONE
     Dosage: 0.5MG/DAY
     Route: 048
  8. EDOXABAN [Suspect]
     Active Substance: EDOXABAN TOSYLATE
     Indication: ATRIAL FIBRILLATION
     Dosage: 30 MG, QD
     Route: 048
     Dates: start: 20150916, end: 20151102
  9. MAINTATE [Concomitant]
     Active Substance: BISOPROLOL FUMARATE
     Dosage: 2.5MG/DAY
     Route: 048
  10. NEUROTROPIN                        /06251301/ [Concomitant]
     Dosage: 12IU/DAY
     Route: 048
  11. METHYCOBAL [Concomitant]
     Active Substance: METHYLCOBALAMIN
     Dosage: 1500UG/DAY
     Route: 048
  12. FAMOTIDINE. [Concomitant]
     Active Substance: FAMOTIDINE
     Dosage: 20MG/DAY
     Route: 048
  13. MAGNESIUM OXIDE. [Concomitant]
     Active Substance: MAGNESIUM OXIDE
     Dosage: 999MG/DAY
     Route: 048

REACTIONS (2)
  - Bladder cancer [Recovering/Resolving]
  - Haematuria [Recovered/Resolved]

NARRATIVE: CASE EVENT DATE: 20151030
